FAERS Safety Report 7799916-8 (Version None)
Quarter: 2011Q4

REPORT INFORMATION
  Report Type: 
  Country: None (occurrence: None)
  Receive Date: 20111004
  Receipt Date: 20110920
  Transmission Date: 20120403
  Serious: Yes (Hospitalization, Disabling, Other)
  Sender: FDA-Public Use
  Company Number: 2011SP014621

PATIENT
  Age: 38 Year
  Sex: Female
  Weight: 86.1834 kg

DRUGS (9)
  1. VICODIN [Concomitant]
  2. KEPPRA [Concomitant]
  3. AXERT [Concomitant]
  4. NUVARING [Suspect]
     Indication: MIGRAINE
     Dates: start: 20080101, end: 20090426
  5. NUVARING [Suspect]
     Indication: CONTRACEPTION
     Dates: start: 20080101, end: 20090426
  6. DIAMOX SRC [Concomitant]
  7. ZANAFLEX [Concomitant]
  8. SKELAXIN [Concomitant]
  9. XANAX [Concomitant]

REACTIONS (13)
  - CHEST PAIN [None]
  - PRESYNCOPE [None]
  - RASH [None]
  - POLYCYSTIC OVARIES [None]
  - DYSPNOEA [None]
  - PULMONARY EMBOLISM [None]
  - HYPOTENSION [None]
  - DEEP VEIN THROMBOSIS [None]
  - PNEUMONIA [None]
  - LIVER DISORDER [None]
  - BRADYCARDIA [None]
  - SYNCOPE [None]
  - DILATATION VENTRICULAR [None]
